FAERS Safety Report 6929674-8 (Version None)
Quarter: 2010Q3

REPORT INFORMATION
  Report Type: 
  Country: None (occurrence: None)
  Receive Date: 20100818
  Receipt Date: 20100808
  Transmission Date: 20110219
  Serious: Yes (Hospitalization)
  Sender: FDA-Public Use
  Company Number: BE-BAYER-201034569GPV

PATIENT
  Age: 76 Year
  Sex: Male
  Weight: 84 kg

DRUGS (14)
  1. SORAFENIB [Suspect]
     Indication: HEPATIC NEOPLASM MALIGNANT
     Dosage: TOTAL DAILY DOSE: 800 MG
     Route: 048
     Dates: start: 20100720, end: 20100729
  2. SORAFENIB [Suspect]
     Dosage: DRUG RESTARTED AT REDUCED DOSE
     Dates: start: 20100802, end: 20100805
  3. ERLOTINIB OR PLACEBO [Suspect]
     Indication: HEPATIC NEOPLASM MALIGNANT
     Route: 048
     Dates: start: 20100720, end: 20100729
  4. ERLOTINIB OR PLACEBO [Suspect]
     Dosage: DRUG RESTARTED AT REDUCED DOSE
     Dates: start: 20100802, end: 20100805
  5. PROVERA [Concomitant]
     Indication: DECREASED APPETITE
     Route: 048
     Dates: start: 20100727, end: 20100729
  6. MOTILIUM [Concomitant]
     Indication: ABDOMINAL PAIN
     Route: 048
     Dates: start: 20100727
  7. GAVISCON [Concomitant]
     Indication: ABDOMINAL PAIN
     Dosage: 250MG/5ML
     Route: 048
     Dates: start: 20100727
  8. ZESTORETIC [Concomitant]
     Indication: HYPERTENSION
     Dosage: AS USED: 20/12.5 MG
     Route: 048
  9. PLAVIX [Concomitant]
     Indication: CORONARY ANGIOPLASTY
     Route: 048
     Dates: start: 20040101
  10. HALCION [Concomitant]
     Indication: INSOMNIA
     Route: 048
     Dates: end: 20100729
  11. TAMSULOSINE [Concomitant]
     Indication: BENIGN PROSTATIC HYPERPLASIA
     Route: 048
     Dates: start: 20050101
  12. GLURENORM [Concomitant]
     Indication: DIABETES MELLITUS
     Route: 048
     Dates: start: 20040101
  13. DOC RANITIDINE [Concomitant]
     Indication: OESOPHAGITIS
     Route: 048
     Dates: start: 20040101
  14. KREDEX [Concomitant]
     Indication: HYPERTENSION
     Route: 048
     Dates: start: 20040101

REACTIONS (1)
  - CONFUSIONAL STATE [None]
